FAERS Safety Report 4424018-8 (Version None)
Quarter: 2004Q3

REPORT INFORMATION
  Report Type: 
  Country: None (occurrence: None)
  Receive Date: 20040812
  Receipt Date: 20040430
  Transmission Date: 20050211
  Serious: Yes (Death, Other)
  Sender: FDA-Public Use
  Company Number: JP-BRISTOL-MYERS SQUIBB COMPANY-12575296

PATIENT
  Age: 38 Year
  Sex: Female

DRUGS (5)
  1. TAXOL [Suspect]
     Indication: BREAST CANCER
     Dosage: 90 MG ON 30-MAR AND 06-APR-2004 60 MG ON 13-APR-2004
     Route: 041
     Dates: start: 20040330, end: 20040413
  2. DECADRON [Concomitant]
     Route: 041
     Dates: start: 20040330, end: 20040413
  3. ZANTAC [Concomitant]
     Route: 042
     Dates: start: 20040330, end: 20040413
  4. RESTAMIN [Concomitant]
     Dates: start: 20040330, end: 20040413
  5. ZOFRAN [Concomitant]
     Route: 041
     Dates: start: 20040330, end: 20040413

REACTIONS (5)
  - DISSEMINATED INTRAVASCULAR COAGULATION [None]
  - HEPATIC FUNCTION ABNORMAL [None]
  - HYPERCALCAEMIA [None]
  - PLATELET COUNT DECREASED [None]
  - RIGHT VENTRICULAR FAILURE [None]
